FAERS Safety Report 7221294-3 (Version None)
Quarter: 2011Q1

REPORT INFORMATION
  Report Type: 
  Country: None (occurrence: None)
  Receive Date: 20110112
  Receipt Date: 20110105
  Transmission Date: 20110831
  Serious: Yes (Hospitalization)
  Sender: FDA-Public Use
  Company Number: PHHY2010DE04026

PATIENT
  Sex: Female

DRUGS (1)
  1. EXTAVIA [Suspect]
     Dosage: 1 ML, QOD
     Route: 058
     Dates: start: 20091123

REACTIONS (5)
  - CHILLS [None]
  - SENSATION OF HEAVINESS [None]
  - NEURALGIA [None]
  - HEADACHE [None]
  - HERPES ZOSTER [None]
